FAERS Safety Report 4877995-5 (Version None)
Quarter: 2006Q1

REPORT INFORMATION
  Report Type: 
  Country: None (occurrence: None)
  Receive Date: 20060110
  Receipt Date: 20051228
  Transmission Date: 20060701
  Serious: Yes (Death)
  Sender: FDA-Public Use
  Company Number: 2005163454

PATIENT
  Age: 81 Year
  Sex: Male

DRUGS (2)
  1. GEODON [Suspect]
     Indication: ABNORMAL BEHAVIOUR
     Dosage: INTRAMUSCULAR; ORAL
     Route: 030
     Dates: start: 20051112, end: 20051119
  2. GEODON [Suspect]
     Indication: AGITATION
     Dosage: INTRAMUSCULAR; ORAL
     Route: 030
     Dates: start: 20051112, end: 20051119

REACTIONS (1)
  - DEATH [None]
